FAERS Safety Report 5565656-9 (Version None)
Quarter: 2007Q4

REPORT INFORMATION
  Report Type: 
  Country: None (occurrence: None)
  Receive Date: 20071218
  Receipt Date: 20071128
  Transmission Date: 20080405
  Serious: No
  Sender: FDA-Public Use
  Company Number: US-BOEHRINGER INGELHEIM PHARMACEUTICALS, INC.-2007-BP-25300BP

PATIENT
  Sex: Male

DRUGS (3)
  1. FLOMAX [Suspect]
     Indication: PROSTATIC DISORDER
     Dates: start: 20050101
  2. FLOMAX [Suspect]
     Dates: start: 19970101, end: 20050101
  3. PRESERVISION [Suspect]

REACTIONS (2)
  - DYSURIA [None]
  - THERAPEUTIC RESPONSE DECREASED [None]
